FAERS Safety Report 9521126 (Version 1)
Quarter: 2013Q1

REPORT INFORMATION
  Report Type: Spontaneous
  Country: US (occurrence: None)
  Receive Date: 20130305
  Receipt Date: 20130305
  Transmission Date: 20140127
  Serious: Yes (Hospitalization)
  Sender: FDA-Public Use
  Company Number: 163-21880-12023196

PATIENT
  Age: 79 Year
  Sex: Female
  Weight: 45.81 kg

DRUGS (1)
  1. REVLIMID [Suspect]
     Indication: MYELODYSPLASTIC SYNDROME
     Route: 048
     Dates: start: 20120124

REACTIONS (3)
  - Myelodysplastic syndrome [None]
  - Oropharyngeal pain [None]
  - Glossodynia [None]
